FAERS Safety Report 6303233-2 (Version None)
Quarter: 2009Q3

REPORT INFORMATION
  Report Type: 
  Country: None (occurrence: None)
  Receive Date: 20090810
  Receipt Date: 20090215
  Transmission Date: 20100115
  Serious: No
  Sender: FDA-Public Use
  Company Number: A0769372A

PATIENT
  Age: 57 Year
  Sex: Female

DRUGS (1)
  1. PAXIL [Suspect]
     Indication: DRUG USE FOR UNKNOWN INDICATION
     Route: 048
     Dates: start: 20020101, end: 20090201

REACTIONS (7)
  - ANGER [None]
  - ANTISOCIAL BEHAVIOUR [None]
  - CRYING [None]
  - EMOTIONAL DISORDER [None]
  - EUPHORIC MOOD [None]
  - FEELING ABNORMAL [None]
  - SOCIAL AVOIDANT BEHAVIOUR [None]
